FAERS Safety Report 10824778 (Version 5)
Quarter: 2016Q1

REPORT INFORMATION
  Report Type: Spontaneous
  Country: CA (occurrence: CA)
  Receive Date: 20150219
  Receipt Date: 20160307
  Transmission Date: 20160525
  Serious: Yes (Other)
  Sender: FDA-Public Use
  Company Number: CA-ROCHE-1339775

PATIENT
  Age: 70 Year
  Sex: Female
  Weight: 76 kg

DRUGS (6)
  1. XOLAIR [Suspect]
     Active Substance: OMALIZUMAB
     Route: 058
     Dates: start: 20140506
  2. SINGULAIR [Concomitant]
     Active Substance: MONTELUKAST SODIUM
  3. XOLAIR [Suspect]
     Active Substance: OMALIZUMAB
     Route: 058
     Dates: start: 20150312
  4. XOLAIR [Suspect]
     Active Substance: OMALIZUMAB
     Indication: ASTHMA
     Route: 058
     Dates: start: 20080320
  5. XOLAIR [Suspect]
     Active Substance: OMALIZUMAB
     Route: 058
     Dates: start: 20150225
  6. ADVAIR HFA [Suspect]
     Active Substance: FLUTICASONE PROPIONATE\SALMETEROL XINAFOATE
     Indication: PRODUCT USED FOR UNKNOWN INDICATION
     Route: 065

REACTIONS (11)
  - Cough [Unknown]
  - Weight increased [Unknown]
  - Nephrolithiasis [Unknown]
  - Sinusitis [Unknown]
  - Ear infection [Not Recovered/Not Resolved]
  - Fall [Unknown]
  - Oropharyngeal pain [Unknown]
  - Pain [Unknown]
  - Body temperature decreased [Unknown]
  - Pyrexia [Unknown]
  - Wrist fracture [Unknown]

NARRATIVE: CASE EVENT DATE: 20140121
